FAERS Safety Report 9527958 (Version 1)
Quarter: 2013Q1

REPORT INFORMATION
  Report Type: Spontaneous
  Country: US (occurrence: None)
  Receive Date: 20130313
  Receipt Date: 20130313
  Transmission Date: 20140127
  Serious: No
  Sender: FDA-Public Use
  Company Number: 1000028175

PATIENT
  Age: 69 Year
  Sex: Female

DRUGS (4)
  1. SAVELLA [Suspect]
     Indication: FIBROMYALGIA
     Dosage: 12.5 MG (12.5 MG,1 IN 1 D),ORAL
     Route: 048
     Dates: start: 20120128, end: 20120128
  2. SAVELLA [Suspect]
     Indication: FIBROMYALGIA
     Dosage: 25 MG (12.5 MG,2 IN 1 D),ORAL
     Route: 048
     Dates: start: 20120129, end: 20120129
  3. HYDROCODONE (HYDROCODONE) (HYDROCODONE) [Concomitant]
  4. MULTIVITAMINS (MULTIVITIAMINS) (MULTIVITAMINS)? [Concomitant]

REACTIONS (1)
  - Vomiting [None]
